FAERS Safety Report 7279249-9 (Version None)
Quarter: 2011Q1

REPORT INFORMATION
  Report Type: 
  Country: None (occurrence: None)
  Receive Date: 20110207
  Receipt Date: 20110131
  Transmission Date: 20110831
  Serious: Yes (Death, Other)
  Sender: FDA-Public Use
  Company Number: DE-PFIZER INC-2011021506

PATIENT
  Age: 70 Year
  Sex: Male

DRUGS (5)
  1. PANTOZOL [Concomitant]
  2. SORTIS [Suspect]
     Indication: CEREBRAL INFARCTION
     Dosage: UNK
  3. SANDIMMUNE [Suspect]
     Indication: RENAL TRANSPLANT
     Dosage: 25 MG, 2X/DAY
  4. KLACID [Concomitant]
  5. SEROQUEL [Concomitant]

REACTIONS (2)
  - RHABDOMYOLYSIS [None]
  - CRUSH SYNDROME [None]
